FAERS Safety Report 19769576 (Version 1)
Quarter: 2021Q3

REPORT INFORMATION
  Report Type: Spontaneous
  Country: UA (occurrence: UA)
  Receive Date: 20210831
  Receipt Date: 20210831
  Transmission Date: 20211014
  Serious: Yes (Other)
  Sender: FDA-Public Use
  Company Number: UA-BAYER-2021-202077

PATIENT
  Sex: Female

DRUGS (2)
  1. MIRENA [Suspect]
     Active Substance: LEVONORGESTREL
     Indication: GENITAL HAEMORRHAGE
  2. MIRENA [Suspect]
     Active Substance: LEVONORGESTREL
     Indication: PREVENTION OF ENDOMETRIAL HYPERPLASIA
     Dosage: 20  ?G PER DAY CONTINUOUSLY
     Route: 015
     Dates: start: 202011

REACTIONS (2)
  - Ovarian cancer [None]
  - Breast cancer [None]

NARRATIVE: CASE EVENT DATE: 202105
